FAERS Safety Report 17016698 (Version 1)
Quarter: 2019Q4

REPORT INFORMATION
  Report Type: Spontaneous
  Country: US (occurrence: US)
  Receive Date: 20191111
  Receipt Date: 20191111
  Transmission Date: 20200122
  Serious: No
  Sender: FDA-Public Use
  Company Number: US-NORTHSTAR HEALTHCARE HOLDINGS-US-2019NSR000136

PATIENT
  Age: 57 Year
  Sex: Female

DRUGS (2)
  1. BACLOFEN. [Suspect]
     Active Substance: BACLOFEN
     Indication: TRIGEMINAL NEURALGIA
     Dosage: 10 MG, QD
     Route: 048
     Dates: start: 20190827, end: 20190901
  2. CELECOXIB. [Concomitant]
     Active Substance: CELECOXIB
     Indication: MIGRAINE
     Dosage: UNK
     Route: 065

REACTIONS (2)
  - Rash erythematous [Recovering/Resolving]
  - Swelling face [Recovering/Resolving]

NARRATIVE: CASE EVENT DATE: 20190901
